FAERS Safety Report 4955052-7 (Version None)
Quarter: 2006Q1

REPORT INFORMATION
  Report Type: 
  Country: None (occurrence: None)
  Receive Date: 20060322
  Receipt Date: 20060301
  Transmission Date: 20060701
  Serious: Yes (Other)
  Sender: FDA-Public Use
  Company Number: US200602004805

PATIENT
  Age: 56 Year
  Sex: Male

DRUGS (1)
  1. CYMBALTA [Suspect]
     Indication: FATIGUE
     Dosage: 30 MG
     Dates: start: 20050201, end: 20060223

REACTIONS (3)
  - BODY TEMPERATURE DECREASED [None]
  - CHILLS [None]
  - FEELING COLD [None]
